FAERS Safety Report 9098404 (Version 1)
Quarter: 2013Q1

REPORT INFORMATION
  Report Type: Spontaneous
  Country: US (occurrence: US)
  Receive Date: 20130213
  Receipt Date: 20130213
  Transmission Date: 20140127
  Serious: Yes (Hospitalization)
  Sender: FDA-Public Use
  Company Number: US-BAXTER-2013BAX005188

PATIENT
  Sex: Male
  Weight: 65.45 kg

DRUGS (1)
  1. GAMMAGARD S/D [Suspect]
     Indication: IMMUNODEFICIENCY
     Route: 042
     Dates: start: 2002

REACTIONS (2)
  - Umbilical hernia [Recovered/Resolved]
  - Haemolysis [Unknown]
